FAERS Safety Report 4875818-1 (Version None)
Quarter: 2006Q1

REPORT INFORMATION
  Report Type: 
  Country: None (occurrence: None)
  Receive Date: 20060106
  Receipt Date: 20051223
  Transmission Date: 20060701
  Serious: Yes (Death, Hospitalization)
  Sender: FDA-Public Use
  Company Number: 2005-US-00924

PATIENT
  Age: 47 Year
  Sex: Male
  Weight: 113.3993 kg

DRUGS (4)
  1. CLOZAPINE [Suspect]
     Indication: SCHIZOPHRENIA
     Dosage: 750 MG QD, ORAL
     Route: 048
     Dates: start: 20010101, end: 20050901
  2. VENLAFAXINE HCL [Concomitant]
  3. OXCARBAZEPINE [Concomitant]
  4. QUETIAPINE FUMARATE [Concomitant]

REACTIONS (1)
  - MYOCARDIAL INFARCTION [None]
